FAERS Safety Report 16529570 (Version 1)
Quarter: 2019Q3

REPORT INFORMATION
  Report Type: Report from Study
  Country: None (occurrence: US)
  Receive Date: 20190703
  Receipt Date: 20190703
  Transmission Date: 20191004
  Serious: Yes (Hospitalization, Other)
  Sender: FDA-Public Use
  Company Number: US-ABBVIE-19K-163-2805276-00

PATIENT
  Sex: Male
  Weight: 112.59 kg

DRUGS (1)
  1. HUMIRA [Suspect]
     Active Substance: ADALIMUMAB
     Indication: PSORIASIS
     Route: 058
     Dates: start: 201812, end: 201906

REACTIONS (6)
  - Rotator cuff syndrome [Recovering/Resolving]
  - Respiratory tract procedural complication [Unknown]
  - Pulmonary mass [Unknown]
  - Exostosis [Recovering/Resolving]
  - Articular calcification [Recovering/Resolving]
  - Osteoarthritis [Recovering/Resolving]

NARRATIVE: CASE EVENT DATE: 201812
